FAERS Safety Report 6876302-6 (Version None)
Quarter: 2010Q3

REPORT INFORMATION
  Report Type: 
  Country: None (occurrence: None)
  Receive Date: 20100727
  Receipt Date: 20100722
  Transmission Date: 20110219
  Serious: Yes (Other)
  Sender: FDA-Public Use
  Company Number: D0064057A

PATIENT
  Age: 69 Year
  Sex: Male

DRUGS (6)
  1. REQUIP [Suspect]
     Dosage: 4MG PER DAY
     Route: 048
     Dates: start: 20091112
  2. EXELON [Suspect]
     Route: 062
  3. LEVOCARB [Concomitant]
     Dosage: 1TAB FIVE TIMES PER DAY
     Route: 048
     Dates: end: 20100701
  4. MADOPAR [Concomitant]
     Route: 065
  5. LEVODOPA [Concomitant]
     Route: 065
  6. STALEVO 100 [Concomitant]
     Route: 065
     Dates: start: 20100701

REACTIONS (3)
  - ADVERSE EVENT [None]
  - AGGRESSION [None]
  - CONFUSIONAL STATE [None]
